FAERS Safety Report 18319308 (Version 4)
Quarter: 2021Q2

REPORT INFORMATION
  Report Type: Report from Study
  Country: US (occurrence: US)
  Receive Date: 20200928
  Receipt Date: 20210507
  Transmission Date: 20210717
  Serious: Yes (Other)
  Sender: FDA-Public Use
  Company Number: NVSC2020US259049

PATIENT
  Sex: Male

DRUGS (1)
  1. ENTRESTO [Suspect]
     Active Substance: SACUBITRIL\VALSARTAN
     Indication: PRODUCT USED FOR UNKNOWN INDICATION
     Dosage: 50 MG, BID
     Route: 048
     Dates: start: 202010

REACTIONS (7)
  - Ejection fraction decreased [Unknown]
  - Periarthritis [Unknown]
  - Dizziness [Unknown]
  - Leukaemia [Unknown]
  - Hypoacusis [Unknown]
  - Hypotension [Unknown]
  - Weight increased [Unknown]
